FAERS Safety Report 7594147-9 (Version None)
Quarter: 2011Q3

REPORT INFORMATION
  Report Type: 
  Country: None (occurrence: None)
  Receive Date: 20110706
  Receipt Date: 20110630
  Transmission Date: 20111222
  Serious: Yes (Other)
  Sender: FDA-Public Use
  Company Number: AU-PFIZER INC-2011121486

PATIENT
  Age: 57 Year
  Sex: Male
  Weight: 83 kg

DRUGS (4)
  1. SERTRALINE HYDROCHLORIDE [Suspect]
     Indication: DEPRESSION
     Dosage: 250 MG, DAILY
     Route: 048
     Dates: start: 20110101
  2. NEXIUM [Concomitant]
     Indication: GASTROOESOPHAGEAL REFLUX DISEASE
     Dosage: 20 MG, 1X/DAY
     Route: 048
  3. LIPITOR [Concomitant]
     Indication: LIPIDS INCREASED
     Dosage: 40 MG, 1X/DAY
     Route: 048
  4. ZOLOFT [Suspect]
     Indication: PANIC ATTACK
     Dosage: 250 MG DAILY
     Dates: start: 19940101, end: 20110101

REACTIONS (7)
  - BALANCE DISORDER [None]
  - FEAR OF FALLING [None]
  - FALL [None]
  - PARAESTHESIA [None]
  - PATELLA FRACTURE [None]
  - COORDINATION ABNORMAL [None]
  - GAIT DISTURBANCE [None]
